FAERS Safety Report 8249189-7 (Version None)
Quarter: 2012Q1

REPORT INFORMATION
  Report Type: 
  Country: None (occurrence: None)
  Receive Date: 20120328
  Receipt Date: 20120316
  Transmission Date: 20120608
  Serious: Yes (Hospitalization)
  Sender: FDA-Public Use
  Company Number: AUR-APL-2012-01492

PATIENT
  Age: 59 Year
  Sex: Male

DRUGS (14)
  1. FIBRIC ACID [Concomitant]
  2. NITRATES (SILVER NITRATE) [Concomitant]
  3. CARVEDILOL [Suspect]
     Indication: PRODUCT USED FOR UNKNOWN INDICATION
     Dates: start: 20110504, end: 20110509
  4. TORSEMIDE [Suspect]
     Indication: PRODUCT USED FOR UNKNOWN INDICATION
  5. BETA-BLOCKER (BETA BLOCKING AGENTS) [Concomitant]
  6. ASPIRIN [Concomitant]
  7. STATIN ORAL ANTICOAGULANTS [Concomitant]
  8. SPIRONOLACTONE [Suspect]
     Indication: PRODUCT USED FOR UNKNOWN INDICATION
     Dates: start: 20110505, end: 20110509
  9. PLACEBO [Suspect]
     Indication: TYPE 2 DIABETES MELLITUS
     Dates: start: 20110325
  10. EZETIMIBE [Concomitant]
  11. FUROSEMIDE [Suspect]
     Indication: PRODUCT USED FOR UNKNOWN INDICATION
  12. SAXAGLIPTIN (SAXAGLIPTIN) [Suspect]
     Indication: PRODUCT USED FOR UNKNOWN INDICATION
     Dates: start: 20110325
  13. DIURETICS (DIURETICS) [Concomitant]
  14. ANTI-PLATELET AGENTS (PLATELET AGGREGATION INHBIITORS EXCL.HEPARIN_ [Concomitant]

REACTIONS (9)
  - VISION BLURRED [None]
  - HEPATIC STEATOSIS [None]
  - HYPOTENSION [None]
  - HYPOVOLAEMIA [None]
  - AORTIC VALVE SCLEROSIS [None]
  - CARDIAC FAILURE CONGESTIVE [None]
  - CONDITION AGGRAVATED [None]
  - AORTIC VALVE INCOMPETENCE [None]
  - RENAL FAILURE ACUTE [None]
